FAERS Safety Report 5089303-8 (Version None)
Quarter: 2006Q3

REPORT INFORMATION
  Report Type: 
  Country: None (occurrence: None)
  Receive Date: 20060822
  Receipt Date: 20060802
  Transmission Date: 20061208
  Serious: Yes (Hospitalization, Other)
  Sender: FDA-Public Use
  Company Number: US200606001856

PATIENT
  Age: 70 Year
  Sex: Female
  Weight: 61.2 kg

DRUGS (10)
  1. FORTEO [Suspect]
     Indication: OSTEOPOROSIS
     Dosage: 20 UG,
     Dates: start: 20060404
  2. FORTEO [Concomitant]
  3. GLYBURIDE [Concomitant]
  4. ACTOS [Concomitant]
  5. LIPITOR [Concomitant]
  6. DIOVAN [Concomitant]
  7. LOTREL [Concomitant]
  8. DYAZIDE /CAN/ (HYDROCHLOROTHIAZIDE, TRIAMTERENE) [Concomitant]
  9. XANAX /USA/ (ALPRAZOLAM) [Concomitant]
  10. LEXAPRO /USA/ (ESCITALOPRAM) [Concomitant]

REACTIONS (29)
  - ABDOMINAL PAIN UPPER [None]
  - ASTHENIA [None]
  - BALANCE DISORDER [None]
  - CAROTID BRUIT [None]
  - CHRONIC OBSTRUCTIVE PULMONARY DISEASE [None]
  - CLEAR CELL CARCINOMA OF THE KIDNEY [None]
  - CULTURE URINE POSITIVE [None]
  - DIARRHOEA [None]
  - DYSPNOEA [None]
  - FATIGUE [None]
  - GASTRITIS [None]
  - GOITRE [None]
  - HYPERTHYROIDISM [None]
  - HYPOXIA [None]
  - IRRITABLE BOWEL SYNDROME [None]
  - JOINT SWELLING [None]
  - KLEBSIELLA INFECTION [None]
  - MEMORY IMPAIRMENT [None]
  - MUSCLE ATROPHY [None]
  - MUSCULAR WEAKNESS [None]
  - NAUSEA [None]
  - OCCULT BLOOD POSITIVE [None]
  - OEDEMA MUCOSAL [None]
  - OEDEMA PERIPHERAL [None]
  - PHARMACEUTICAL PRODUCT COMPLAINT [None]
  - RESPIRATORY FAILURE [None]
  - STOMACH DISCOMFORT [None]
  - TREMOR [None]
  - WEIGHT DECREASED [None]
